FAERS Safety Report 23312768 (Version 1)
Quarter: 2023Q4

REPORT INFORMATION
  Report Type: Spontaneous
  Country: FR (occurrence: FR)
  Receive Date: 20231219
  Receipt Date: 20231219
  Transmission Date: 20240110
  Serious: Yes (Other)
  Sender: FDA-Public Use
  Company Number: FR-ASPEN-GLO2023FR006978

PATIENT
  Age: 35 Year
  Sex: Male

DRUGS (5)
  1. METHOTREXATE [Suspect]
     Active Substance: METHOTREXATE
     Indication: Crohn^s disease
     Dosage: (AZATHIOPRINE THEN METHOTREXATE FOR 6 YEARS)
  2. ADALIMUMAB [Suspect]
     Active Substance: ADALIMUMAB\ISOPROPYL ALCOHOL
     Indication: Crohn^s disease
     Dosage: (COMBINING ADALIMUMAB AND AZATHIOPRINE FOR 10 YEARS)
  3. AZATHIOPRINE [Suspect]
     Active Substance: AZATHIOPRINE
     Indication: Crohn^s disease
     Dosage: (AZATHIOPRINE THEN METHOTREXATE FOR 6 YEARS)
  4. INFLIXIMAB [Suspect]
     Active Substance: INFLIXIMAB
     Indication: Crohn^s disease
  5. AZATHIOPRINE [Suspect]
     Active Substance: AZATHIOPRINE
     Indication: Crohn^s disease
     Dosage: (COMBINING ADALIMUMAB AND AZATHIOPRINE FOR 10 YEARS)

REACTIONS (2)
  - Epstein-Barr virus associated lymphoma [Unknown]
  - B-cell lymphoma [Unknown]
